FAERS Safety Report 9155728 (Version 3)
Quarter: 2013Q2

REPORT INFORMATION
  Report Type: Spontaneous
  Country: GB (occurrence: GB)
  Receive Date: 20130311
  Receipt Date: 20130414
  Transmission Date: 20140414
  Serious: Yes (Death, Hospitalization)
  Sender: FDA-Public Use
  Company Number: GB-B.I. PHARMACEUTICALS,INC./RIDGEFIELD-2013-UK-00352UK

PATIENT
  Sex: Female

DRUGS (1)
  1. NON BI DRUG [Suspect]

REACTIONS (4)
  - Gastric haemorrhage [Fatal]
  - Haematemesis [Fatal]
  - Contusion [Unknown]
  - Pain [Unknown]
